FAERS Safety Report 8218377-8 (Version None)
Quarter: 2012Q1

REPORT INFORMATION
  Report Type: 
  Country: None (occurrence: None)
  Receive Date: 20120319
  Receipt Date: 20120313
  Transmission Date: 20120608
  Serious: Yes (Hospitalization)
  Sender: FDA-Public Use
  Company Number: NL-GLAXOSMITHKLINE-B0673193A

PATIENT
  Sex: Female
  Weight: 63.6 kg

DRUGS (2)
  1. VOTRIENT [Suspect]
     Indication: NEOPLASM
     Dosage: 1000MG PER DAY
     Route: 048
     Dates: start: 20100803
  2. IFOSFAMIDE [Suspect]
     Indication: NEOPLASM
     Route: 042
     Dates: start: 20100810, end: 20100810

REACTIONS (1)
  - FEBRILE NEUTROPENIA [None]
